FAERS Safety Report 9843959 (Version 1)
Quarter: 2013Q4

REPORT INFORMATION
  Report Type: Spontaneous
  Country: US (occurrence: None)
  Receive Date: 20131223
  Receipt Date: 20131223
  Transmission Date: 20140711
  Serious: No
  Sender: FDA-Public Use
  Company Number: 1000049951

PATIENT
  Age: 59 None
  Sex: Male

DRUGS (4)
  1. LINZESS (LINACLOTIDE) (145 MICROGRAM, CAPSULES) [Suspect]
     Indication: CONSTIPATION
     Dosage: 145 MCG (145 MCG, 1  IN 1 D), ORAL
     Route: 048
     Dates: start: 20131007
  2. METOPROLOL (METOPROLOL) (METOPROLOL) [Concomitant]
  3. DIGOXIN (DIGOXIN) (DIGOXIN) [Concomitant]
  4. COUMADIN (WARFARIN SODIUM) (WARFARIN SODIUM) [Concomitant]

REACTIONS (2)
  - Blood glucose decreased [None]
  - Diarrhoea [None]
